FAERS Safety Report 6221834-7 (Version None)
Quarter: 2009Q2

REPORT INFORMATION
  Report Type: 
  Country: None (occurrence: None)
  Receive Date: 20090609
  Receipt Date: 20090601
  Transmission Date: 20091009
  Serious: Yes (Other)
  Sender: FDA-Public Use
  Company Number: CHPA2009US12732

PATIENT
  Age: 69 Year
  Sex: Female

DRUGS (2)
  1. TRANSDERM SCOP [Suspect]
     Indication: BALANCE DISORDER
     Dosage: 1.5 MG, Q72H, TRANSDERMAL
     Route: 062
     Dates: start: 20080101
  2. TRANSDERM SCOP [Suspect]
     Indication: DIZZINESS
     Dosage: 1.5 MG, Q72H, TRANSDERMAL
     Route: 062
     Dates: start: 20080101

REACTIONS (2)
  - OFF LABEL USE [None]
  - PLEURAL EFFUSION [None]
